FAERS Safety Report 10081777 (Version 1)
Quarter: 2014Q2

REPORT INFORMATION
  Report Type: Spontaneous
  Country: US (occurrence: US)
  Receive Date: 20140416
  Receipt Date: 20140416
  Transmission Date: 20141212
  Serious: No
  Sender: FDA-Public Use
  Company Number: US-009507513-1404USA007951

PATIENT
  Age: 30 Year
  Sex: 0
  Weight: 112.8 kg

DRUGS (1)
  1. NEXPLANON [Suspect]
     Dosage: 1 ROD
     Route: 059
     Dates: start: 20140411

REACTIONS (2)
  - Device difficult to use [Unknown]
  - No adverse event [Unknown]
